FAERS Safety Report 17741529 (Version 1)
Quarter: 2020Q2

REPORT INFORMATION
  Report Type: Spontaneous
  Country: CN (occurrence: CN)
  Receive Date: 20200504
  Receipt Date: 20200504
  Transmission Date: 20200714
  Serious: Yes (Hospitalization)
  Sender: FDA-Public Use
  Company Number: CN-SA-2020SA113194

PATIENT
  Age: 65 Year
  Sex: Male
  Weight: 56 kg

DRUGS (1)
  1. HARNAL [Suspect]
     Active Substance: TAMSULOSIN HYDROCHLORIDE
     Indication: POLLAKIURIA
     Dosage: 0.2 MG, QD
     Route: 048
     Dates: start: 20200412, end: 20200416

REACTIONS (4)
  - Rubella [Recovering/Resolving]
  - Product use in unapproved indication [Unknown]
  - Erythema [Recovering/Resolving]
  - Pruritus [Recovering/Resolving]

NARRATIVE: CASE EVENT DATE: 20200412
